FAERS Safety Report 9380687 (Version 1)
Quarter: 2013Q3

REPORT INFORMATION
  Report Type: Spontaneous
  Country: FR (occurrence: FR)
  Receive Date: 20130702
  Receipt Date: 20130702
  Transmission Date: 20140515
  Serious: Yes (Disabling)
  Sender: FDA-Public Use
  Company Number: FR-JNJFOC-20130620697

PATIENT
  Age: 53 Year
  Sex: Male

DRUGS (1)
  1. TOPALGIC [Suspect]
     Indication: PAIN
     Route: 048
     Dates: start: 20120301, end: 201210

REACTIONS (1)
  - Restless legs syndrome [Recovered/Resolved]
